FAERS Safety Report 23606535 (Version 1)
Quarter: 2024Q1

REPORT INFORMATION
  Report Type: Spontaneous
  Country: US (occurrence: US)
  Receive Date: 20240307
  Receipt Date: 20240307
  Transmission Date: 20240410
  Serious: No
  Sender: FDA-Public Use
  Company Number: US-002147023-NVSC2024US049290

PATIENT

DRUGS (1)
  1. COSENTYX [Suspect]
     Active Substance: SECUKINUMAB
     Indication: Product used for unknown indication
     Route: 065

REACTIONS (6)
  - Injection site scab [Unknown]
  - Injection site pruritus [Unknown]
  - Injection site inflammation [Unknown]
  - Administration site pain [Unknown]
  - Fatigue [Unknown]
  - Urticaria [Unknown]
